FAERS Safety Report 17471526 (Version 2)
Quarter: 2020Q2

REPORT INFORMATION
  Report Type: Spontaneous
  Country: BE (occurrence: BE)
  Receive Date: 20200228
  Receipt Date: 20200522
  Transmission Date: 20200713
  Serious: Yes (Other)
  Sender: FDA-Public Use
  Company Number: BE-009507513-2002BEL009180

PATIENT
  Age: 65 Year
  Sex: Male

DRUGS (6)
  1. METFORMIN [Suspect]
     Active Substance: METFORMIN HYDROCHLORIDE
     Indication: TYPE 2 DIABETES MELLITUS
     Dosage: A GRADUAL DOSE INCREASE FROM 3 X 500 MG TO 3 X 850 MG/DAY.
     Route: 048
  2. METFORMIN [Suspect]
     Active Substance: METFORMIN HYDROCHLORIDE
     Dosage: 3 X 850 MG/DAY
     Route: 048
  3. GLICLAZIDE [Suspect]
     Active Substance: GLICLAZIDE
     Dosage: 2 X 60 MG/DAY
     Route: 065
  4. GLICLAZIDE [Suspect]
     Active Substance: GLICLAZIDE
     Indication: TYPE 2 DIABETES MELLITUS
     Dosage: 2 X 60 MILLIGRAM (MG)/DAY
     Route: 065
  5. JARDIANCE [Suspect]
     Active Substance: EMPAGLIFLOZIN
     Indication: TYPE 2 DIABETES MELLITUS
     Dosage: 10 MILLIGRAM, QD
     Route: 048
  6. SITAGLIPTIN PHOSPHATE [Suspect]
     Active Substance: SITAGLIPTIN PHOSPHATE
     Indication: TYPE 2 DIABETES MELLITUS
     Dosage: 100 MILLIGRAM (MG)
     Route: 048

REACTIONS (2)
  - Drug ineffective [Unknown]
  - Hypoglycaemia [Unknown]
